FAERS Safety Report 14782072 (Version 6)
Quarter: 2018Q3

REPORT INFORMATION
  Report Type: Spontaneous
  Country: DE (occurrence: DE)
  Receive Date: 20180420
  Receipt Date: 20180806
  Transmission Date: 20181010
  Serious: Yes (Other)
  Sender: FDA-Public Use
  Company Number: DE-TEVA-2018-DE-873356

PATIENT
  Sex: Female
  Weight: 55 kg

DRUGS (6)
  1. VOLTAREN [Interacting]
     Active Substance: DICLOFENAC SODIUM
     Indication: BACK PAIN
     Dosage: 50 MILLIGRAM DAILY; 50 MG, BID (IRREGULAR / ON DEMAND)
     Route: 065
  2. LETROZOLE. [Suspect]
     Active Substance: LETROZOLE
     Indication: PRODUCT USED FOR UNKNOWN INDICATION
     Route: 065
  3. VOLTAREN FORTE GEL [Interacting]
     Active Substance: DICLOFENAC DIETHYLAMINE
     Indication: BACK PAIN
  4. VOLTAREN FORTE GEL [Interacting]
     Active Substance: DICLOFENAC DIETHYLAMINE
     Indication: PRODUCT USED FOR UNKNOWN INDICATION
     Dosage: UNK
     Route: 065
  5. ACETYLSALICYLIC ACID [Interacting]
     Active Substance: ASPIRIN
     Indication: PRODUCT USED FOR UNKNOWN INDICATION
     Route: 065
  6. LETROZOLE. [Interacting]
     Active Substance: LETROZOLE
     Indication: BREAST CANCER

REACTIONS (9)
  - Restlessness [Unknown]
  - Drug ineffective [Unknown]
  - Blood pressure systolic increased [Recovered/Resolved]
  - Tachycardia [Unknown]
  - Blood pressure systolic increased [Unknown]
  - Tachycardia [Recovered/Resolved]
  - Drug interaction [Unknown]
  - Tachyarrhythmia [Unknown]
  - Restlessness [Recovered/Resolved]
